FAERS Safety Report 7895796-0 (Version None)
Quarter: 2011Q4

REPORT INFORMATION
  Report Type: 
  Country: None (occurrence: None)
  Receive Date: 20111104
  Receipt Date: 20111104
  Transmission Date: 20120403
  Serious: Yes (Hospitalization)
  Sender: FDA-Public Use
  Company Number: None

PATIENT
  Sex: Female
  Weight: 93 kg

DRUGS (6)
  1. TAXOL [Suspect]
     Dosage: 2800 MG
  2. ANZEMET [Concomitant]
  3. ZANTAC [Concomitant]
  4. CARBOPLATIN [Suspect]
     Dosage: 5680 MG
  5. BENADRYL [Concomitant]
  6. SYNTHROID [Concomitant]

REACTIONS (3)
  - MYELODYSPLASTIC SYNDROME [None]
  - PLATELET COUNT DECREASED [None]
  - HAEMOGLOBIN DECREASED [None]
